FAERS Safety Report 8610231 (Version 2)
Quarter: 2014Q1

REPORT INFORMATION
  Report Type: Spontaneous
  Country: US (occurrence: None)
  Receive Date: 20120323
  Receipt Date: 20140306
  Transmission Date: 20141002
  Serious: Yes (Other)
  Sender: FDA-Public Use
  Company Number: 163-21880-11120438

PATIENT
  Age: 45 Year
  Sex: Male

DRUGS (12)
  1. REVLIMID (LENALIDOMIDE) (25 MILLIGRAM, CAPSULES) [Suspect]
     Indication: PLASMA CELL MYELOMA
     Dosage: 25 MG, 1 IN 1 D, PO
     Route: 048
     Dates: start: 20111110
  2. NEXIUM [Concomitant]
  3. ZOFRAN [Concomitant]
  4. ATIVAN (LORAZEPAM) [Concomitant]
  5. PROTONIX [Concomitant]
  6. AMLODIPINE BESYLATE (AMLODIPINE BESILATE) [Concomitant]
  7. METHADONE INTENSOL (METHADONE HYDROCHLORIDE) [Concomitant]
  8. DEXAMETHASONE [Concomitant]
  9. GABAPENTIN [Concomitant]
  10. PROCHLORPERAZINE [Concomitant]
  11. ALLOPURINOL [Concomitant]
  12. BACTRIM DS (BACTRIM) [Concomitant]

REACTIONS (7)
  - Pneumonia [None]
  - Renal impairment [None]
  - Fatigue [None]
  - Renal failure [None]
  - Constipation [None]
  - Nausea [None]
  - Back pain [None]
